FAERS Safety Report 24684295 (Version 1)
Quarter: 2024Q4

REPORT INFORMATION
  Report Type: Spontaneous
  Country: US (occurrence: US)
  Receive Date: 20241202
  Receipt Date: 20241202
  Transmission Date: 20250115
  Serious: No
  Sender: BIOCON
  Company Number: US-BIOCON-BCN-2024-000271

PATIENT

DRUGS (1)
  1. TORPENZ [Suspect]
     Active Substance: EVEROLIMUS
     Indication: Tuberous sclerosis complex
     Dosage: TAKE 1 TABLET (5 MG) BY MOUTH ONCE DAILY
     Route: 048
     Dates: start: 20241119

REACTIONS (2)
  - Ear infection [Unknown]
  - Sinusitis [Unknown]
